FAERS Safety Report 10582895 (Version 2)
Quarter: 2014Q4

REPORT INFORMATION
  Report Type: Report from Study
  Country: US (occurrence: US)
  Receive Date: 20141114
  Receipt Date: 20141210
  Transmission Date: 20150529
  Serious: Yes (Other)
  Sender: FDA-Public Use
  Company Number: US-AMGEN-USASL2014087874

PATIENT
  Age: 77 Year
  Sex: Male
  Weight: 66.67 kg

DRUGS (1)
  1. ENBREL [Suspect]
     Active Substance: ETANERCEPT
     Indication: PSORIASIS
     Dosage: 50 MG, 2 TIMES/WK
     Route: 058
     Dates: start: 2008

REACTIONS (4)
  - Renal impairment [Unknown]
  - Colon cancer [Unknown]
  - Myocardial infarction [Unknown]
  - Prostatic operation [Unknown]

NARRATIVE: CASE EVENT DATE: 2013
